FAERS Safety Report 9018333 (Version 1)
Quarter: 2013Q1

REPORT INFORMATION
  Report Type: Spontaneous
  Country: US (occurrence: None)
  Receive Date: 20130111
  Receipt Date: 20130111
  Transmission Date: 20140127
  Serious: Yes (Hospitalization)
  Sender: FDA-Public Use
  Company Number: None

PATIENT
  Age: 53 Year
  Sex: Male
  Weight: 110 kg

DRUGS (11)
  1. KEFLEX [Suspect]
     Dosage: PO
     Route: 048
  2. LISINOPRIL [Suspect]
     Dosage: 40MG DAILY PO
     Route: 048
  3. METFORMIN [Concomitant]
  4. SIMCOR [Concomitant]
  5. COLACE [Concomitant]
  6. TYLENOL [Concomitant]
  7. ANDROGEL [Concomitant]
  8. HCTZ [Concomitant]
  9. NORVASC [Concomitant]
  10. COREG [Concomitant]
  11. CLONIDINE [Concomitant]

REACTIONS (8)
  - Anaphylactic reaction [None]
  - Tachycardia [None]
  - Hypertension [None]
  - Hypoxia [None]
  - Renal failure acute [None]
  - Hypoglycaemia [None]
  - Polycythaemia [None]
  - Angioedema [None]
